FAERS Safety Report 24148200 (Version 1)
Quarter: 2024Q3

REPORT INFORMATION
  Report Type: Spontaneous
  Country: US (occurrence: US)
  Receive Date: 20240729
  Receipt Date: 20240729
  Transmission Date: 20241017
  Serious: No
  Sender: SANOFI AVENTIS
  Company Number: US-SANOFI-02147861

PATIENT
  Age: 79 Year
  Sex: Female

DRUGS (3)
  1. LANTUS SOLOSTAR [Suspect]
     Active Substance: INSULIN GLARGINE
     Indication: Diabetes mellitus
     Dosage: 35 UNITS IN THE MORNING; 25 UNITS AT NIGHT, BID
  2. LANTUS SOLOSTAR [Suspect]
     Active Substance: INSULIN GLARGINE
     Dosage: TOOK A TOTAL OF 35 UNITS AROUND 2:35 PM. INSTEAD OF 25 UNITS, BID
     Dates: start: 20240721
  3. METFORMIN [Concomitant]
     Active Substance: METFORMIN HYDROCHLORIDE
     Dosage: UNK, BID

REACTIONS (5)
  - Blood glucose increased [Unknown]
  - Blood glucose decreased [Unknown]
  - Intentional product misuse [Unknown]
  - Off label use [Unknown]
  - Drug ineffective [Unknown]

NARRATIVE: CASE EVENT DATE: 20240721
